FAERS Safety Report 12928045 (Version 1)
Quarter: 2016Q4

REPORT INFORMATION
  Report Type: Spontaneous
  Country: US (occurrence: US)
  Receive Date: 20161110
  Receipt Date: 20161110
  Transmission Date: 20170207
  Serious: Yes (Life-Threatening, Hospitalization, Disabling)
  Sender: FDA-Public Use
  Company Number: None

PATIENT
  Age: 41 Year
  Sex: Male
  Weight: 120.31 kg

DRUGS (4)
  1. ZIPREXA [Concomitant]
  2. DEPAKOTE [Suspect]
     Active Substance: DIVALPROEX SODIUM
     Indication: SCHIZOPHRENIA
  3. INVEGA [Concomitant]
     Active Substance: PALIPERIDONE
  4. RESPIRDOL [Concomitant]

REACTIONS (2)
  - Back pain [None]
  - Renal disorder [None]
